FAERS Safety Report 7312161-5 (Version None)
Quarter: 2011Q1

REPORT INFORMATION
  Report Type: 
  Country: None (occurrence: None)
  Receive Date: 20110224
  Receipt Date: 20110217
  Transmission Date: 20110831
  Serious: Yes (Hospitalization, Disabling)
  Sender: FDA-Public Use
  Company Number: A0832316A

PATIENT
  Sex: Male
  Weight: 109.1 kg

DRUGS (1)
  1. AVANDIA [Suspect]
     Route: 048

REACTIONS (13)
  - ANXIETY [None]
  - CONDITION AGGRAVATED [None]
  - INSOMNIA [None]
  - DISCOMFORT [None]
  - EMOTIONAL DISTRESS [None]
  - SWELLING [None]
  - NASOPHARYNGITIS [None]
  - FLUID RETENTION [None]
  - CORONARY ARTERY DISEASE [None]
  - MYOCARDIAL INFARCTION [None]
  - WEIGHT INCREASED [None]
  - HEADACHE [None]
  - ANGINA PECTORIS [None]
